FAERS Safety Report 7525764-X (Version None)
Quarter: 2011Q2

REPORT INFORMATION
  Report Type: 
  Country: None (occurrence: None)
  Receive Date: 20110606
  Receipt Date: 20110603
  Transmission Date: 20111010
  Serious: Yes (Death, Hospitalization, Other)
  Sender: FDA-Public Use
  Company Number: PHHY2011BR03815

PATIENT
  Sex: Male

DRUGS (1)
  1. FORMOTEROL FUMARATE [Suspect]
     Indication: BRONCHITIS CHRONIC
     Dosage: 1 INHALATION OF EACH ACTIVE
     Dates: end: 20101209

REACTIONS (8)
  - CARDIAC FAILURE [None]
  - CARDIO-RESPIRATORY ARREST [None]
  - ABDOMINAL PAIN [None]
  - CHEST PAIN [None]
  - CHRONIC OBSTRUCTIVE PULMONARY DISEASE [None]
  - BRONCHITIS CHRONIC [None]
  - CONCOMITANT DISEASE PROGRESSION [None]
  - ACUTE RESPIRATORY FAILURE [None]
